FAERS Safety Report 8004862-0 (Version None)
Quarter: 2011Q4

REPORT INFORMATION
  Report Type: 
  Country: None (occurrence: None)
  Receive Date: 20111223
  Receipt Date: 20111220
  Transmission Date: 20120403
  Serious: Yes (Life-Threatening)
  Sender: FDA-Public Use
  Company Number: BE-B.I. PHARMACEUTICALS,INC./RIDGEFIELD-2011-BL-00307BL

PATIENT

DRUGS (6)
  1. CORDARONE [Concomitant]
     Dosage: 200 MG
     Route: 048
     Dates: start: 20080626
  2. LISINOPRIL [Concomitant]
     Route: 048
     Dates: start: 20071101, end: 20111218
  3. DILTIAZEM HCL [Concomitant]
     Dosage: 300 MG
     Route: 048
     Dates: start: 20060101, end: 20111218
  4. PRADAXA [Suspect]
     Indication: ATRIAL FIBRILLATION
     Dosage: 220 MG
     Dates: start: 20111124, end: 20111218
  5. BISOPROLOL FUMARATE [Concomitant]
     Dosage: 2.5 MG
     Route: 048
     Dates: start: 20071101, end: 20111218
  6. LASIX [Concomitant]
     Dosage: 40 MG
     Route: 048
     Dates: start: 20100901, end: 20111218

REACTIONS (4)
  - MYOCARDIAL INFARCTION [None]
  - ATRIAL FIBRILLATION [None]
  - RENAL FAILURE [None]
  - THROMBOSIS IN DEVICE [None]
